FAERS Safety Report 25896574 (Version 2)
Quarter: 2025Q4

REPORT INFORMATION
  Report Type: Spontaneous
  Country: ID (occurrence: ID)
  Receive Date: 20251008
  Receipt Date: 20251010
  Transmission Date: 20260118
  Serious: Yes (Hospitalization)
  Sender: BAYER HEALTHCARE PHARMACEUTICALS INC.
  Company Number: ID-BAYER-2025A131850

PATIENT
  Age: 63 Year
  Sex: Female

DRUGS (1)
  1. ULTRAVIST [Suspect]
     Active Substance: IOPROMIDE
     Indication: Computerised tomogram abdomen
     Dosage: UNK UNK, ONCE
     Dates: start: 20250925, end: 20250925

REACTIONS (7)
  - Erythema [Unknown]
  - Skin hypertrophy [Unknown]
  - Blood pressure decreased [Unknown]
  - Asthenia [Unknown]
  - Swelling face [Not Recovered/Not Resolved]
  - Ear swelling [None]
  - Erythema [None]

NARRATIVE: CASE EVENT DATE: 20250925
